FAERS Safety Report 11309823 (Version 3)
Quarter: 2015Q3

REPORT INFORMATION
  Report Type: Spontaneous
  Country: CH (occurrence: DE)
  Receive Date: 20150724
  Receipt Date: 20150812
  Transmission Date: 20151125
  Serious: Yes (Other)
  Sender: FDA-Public Use
  Company Number: CH-LPDUSPRD-20150570

PATIENT
  Age: 31 Year
  Sex: Female

DRUGS (2)
  1. FERINJECT [Suspect]
     Active Substance: FERRIC CARBOXYMALTOSE
     Dosage: 500 MG, 1 IN 1 TOTAL
     Route: 041
     Dates: start: 20150623, end: 20150623
  2. FOLIC ACID. [Concomitant]
     Active Substance: FOLIC ACID
     Dosage: DOSE NOT PROVIDED
     Route: 065

REACTIONS (2)
  - Exposure during pregnancy [Unknown]
  - Premature labour [Unknown]

NARRATIVE: CASE EVENT DATE: 20150623
